FAERS Safety Report 24122992 (Version 3)
Quarter: 2025Q4

REPORT INFORMATION
  Report Type: Spontaneous
  Country: EU (occurrence: EU)
  Receive Date: 20240723
  Receipt Date: 20251211
  Transmission Date: 20260117
  Serious: Yes (Other)
  Sender: AUROBINDO
  Company Number: EU-STADA-01262478

PATIENT
  Age: 27 Year
  Sex: Male

DRUGS (7)
  1. IBUPROFEN [Suspect]
     Active Substance: IBUPROFEN
     Indication: Ankylosing spondylitis
     Dosage: UNK
  2. IBUPROFEN [Suspect]
     Active Substance: IBUPROFEN
     Indication: Back pain
  3. NIMESULIDE [Suspect]
     Active Substance: NIMESULIDE
     Indication: Ankylosing spondylitis
     Dosage: 1 DOSAGE FORM (1-2 TIMES A DAY)
  4. NIMESULIDE [Suspect]
     Active Substance: NIMESULIDE
     Indication: Back pain
  5. DICLOFENAC [Suspect]
     Active Substance: DICLOFENAC
     Indication: Ankylosing spondylitis
     Dosage: 150 MILLIGRAM, ONCE A DAY
  6. DICLOFENAC [Suspect]
     Active Substance: DICLOFENAC
     Dosage: 75 MILLIGRAM, TWO TIMES A DAY
     Route: 065
  7. BIMEKIZUMAB [Concomitant]
     Active Substance: BIMEKIZUMAB
     Indication: Ankylosing spondylitis
     Dosage: 160 MILLIGRAM, EVERY 4 WEEKS

REACTIONS (4)
  - Liver disorder [Recovered/Resolved]
  - Condition aggravated [Recovered/Resolved]
  - Therapy partial responder [Unknown]
  - Drug ineffective [Recovered/Resolved]
